FAERS Safety Report 6088621-4 (Version None)
Quarter: 2009Q1

REPORT INFORMATION
  Report Type: 
  Country: None (occurrence: None)
  Receive Date: 20090224
  Receipt Date: 20090212
  Transmission Date: 20090719
  Serious: Yes (Other)
  Sender: FDA-Public Use
  Company Number: US-WYE-H04905208

PATIENT
  Sex: Female

DRUGS (3)
  1. PREMARIN [Suspect]
     Indication: HORMONE REPLACEMENT THERAPY
  2. DEPO-ESTRADIOL [Suspect]
  3. PROVERA [Suspect]
     Indication: HORMONE REPLACEMENT THERAPY

REACTIONS (2)
  - BREAST CANCER RECURRENT [None]
  - PAGET'S DISEASE OF THE BREAST [None]
